FAERS Safety Report 6308565 (Version 24)
Quarter: 2014Q1

REPORT INFORMATION
  Report Type: Spontaneous
  Country: US (occurrence: US)
  Receive Date: 20070510
  Receipt Date: 20140106
  Transmission Date: 20141002
  Serious: Yes (Death, Other)
  Sender: FDA-Public Use
  Company Number: PHEH2007US06797

PATIENT
  Age: 75 Year
  Sex: Male

DRUGS (32)
  1. AREDIA [Suspect]
     Route: 042
  2. ZOMETA [Suspect]
     Indication: PROSTATE CANCER
     Dosage: 4 MG, QOD
     Route: 042
     Dates: start: 200303, end: 200501
  3. CLINDAMYCIN [Concomitant]
     Dosage: 300 MG, UNK
     Dates: start: 2004
  4. TAXOTERE [Concomitant]
  5. PROSCAR [Concomitant]
  6. PERIDEX [Concomitant]
     Dates: start: 2004
  7. LUPRON [Concomitant]
  8. PROTONIX [Concomitant]
  9. EMCYT [Concomitant]
  10. BUMETANIDE [Concomitant]
  11. PENICILLIN [Concomitant]
  12. ANTIBIOTICS [Concomitant]
     Route: 042
     Dates: end: 20050421
  13. VICODIN [Concomitant]
  14. LASIX [Concomitant]
     Dosage: 40 MG, QD
     Route: 048
  15. KEFLEX [Concomitant]
     Dosage: 500 MG, QID
     Route: 048
  16. DURAGESIC [Concomitant]
  17. HALOPERIDOL [Concomitant]
  18. COMPAZINE [Concomitant]
     Dosage: 10 MG, Q6H
     Route: 048
  19. BENADRYL [Concomitant]
     Dosage: 25 MG, Q6H
     Route: 048
  20. CLOTRIMAZOLE [Concomitant]
  21. ALLOPURINOL [Concomitant]
     Dosage: 2 DF, QD
     Route: 048
  22. AZITHROMYCIN [Concomitant]
     Dosage: 250 MG, QD
     Route: 048
  23. BOOST [Concomitant]
  24. BUMEX [Concomitant]
  25. CALAMINE LOTION [Concomitant]
  26. CASODEX [Concomitant]
  27. RESTORIL [Concomitant]
     Dosage: 7.5 MG, QHS
     Route: 048
  28. PERCOCET [Concomitant]
     Dosage: 1 DF(10/650), QID
  29. METAMUCIL [Concomitant]
  30. PREDNISONE [Concomitant]
  31. ELIGARD [Concomitant]
  32. NIFEDICAL [Concomitant]

REACTIONS (98)
  - Death [Fatal]
  - Deafness [Unknown]
  - Cardiac disorder [Unknown]
  - Deep vein thrombosis [Unknown]
  - Thrombosis [Unknown]
  - Osteonecrosis of jaw [Unknown]
  - Pathological fracture [Unknown]
  - General physical health deterioration [Unknown]
  - Pain [Unknown]
  - Anxiety [Unknown]
  - Impaired healing [Unknown]
  - Bone disorder [Unknown]
  - Tooth disorder [Unknown]
  - Osteomyelitis [Unknown]
  - Osteomyelitis chronic [Unknown]
  - Pain in jaw [Unknown]
  - Bacterial test [Unknown]
  - Gingival swelling [Unknown]
  - Stomatitis [Unknown]
  - Bone erosion [Unknown]
  - Toothache [Unknown]
  - Tooth infection [Unknown]
  - Tooth abscess [Unknown]
  - Mastication disorder [Unknown]
  - Abscess [Unknown]
  - Soft tissue disorder [Unknown]
  - Bacterial disease carrier [Unknown]
  - Paraesthesia [Unknown]
  - Osteolysis [Unknown]
  - Gout [Unknown]
  - Glaucoma [Unknown]
  - Metastases to bone [Unknown]
  - Hepatitis [Unknown]
  - Pleural effusion [Unknown]
  - Decubitus ulcer [Unknown]
  - Urinary tract infection [Unknown]
  - Renal failure [Unknown]
  - Cardiac failure congestive [Unknown]
  - Depressed mood [Unknown]
  - Balance disorder [Unknown]
  - Memory impairment [Unknown]
  - Osteoarthritis [Unknown]
  - Joint effusion [Unknown]
  - Chondrocalcinosis [Unknown]
  - Urethral obstruction [Unknown]
  - Vascular calcification [Unknown]
  - Cellulitis [Unknown]
  - Gastroenteritis [Unknown]
  - Abdominal pain [Unknown]
  - Penile haemorrhage [Unknown]
  - Lymphoedema [Unknown]
  - Chronic obstructive pulmonary disease [Unknown]
  - Tachypnoea [Unknown]
  - Pulmonary embolism [Unknown]
  - Cholelithiasis [Unknown]
  - Renal hypertrophy [Unknown]
  - Scrotal oedema [Unknown]
  - Hydronephrosis [Unknown]
  - Cataract [Unknown]
  - Ear pain [Unknown]
  - Discomfort [Unknown]
  - Haematuria [Unknown]
  - Anaemia [Unknown]
  - Lipoma [Unknown]
  - Confusional state [Unknown]
  - Decreased appetite [Unknown]
  - Weight decreased [Unknown]
  - Local swelling [Unknown]
  - Bone pain [Unknown]
  - Constipation [Unknown]
  - Insomnia [Unknown]
  - Asthenia [Unknown]
  - Hypokalaemia [Unknown]
  - Hyponatraemia [Unknown]
  - Muscular weakness [Unknown]
  - Arthralgia [Unknown]
  - Dizziness [Unknown]
  - Gait disturbance [Unknown]
  - Vision blurred [Unknown]
  - Renal cancer [Unknown]
  - Second primary malignancy [Unknown]
  - Wound [Unknown]
  - Fall [Unknown]
  - Cystitis [Unknown]
  - Renal cyst [Unknown]
  - Pelvic mass [Unknown]
  - Prostate cancer [Unknown]
  - Malignant neoplasm progression [Unknown]
  - Oedema genital [Unknown]
  - Pulpitis dental [Unknown]
  - Metastases to soft tissue [Unknown]
  - Fatigue [Unknown]
  - Bone swelling [Unknown]
  - Ecchymosis [Unknown]
  - Oedema mucosal [Recovering/Resolving]
  - Osteorrhagia [Unknown]
  - Ureteric stenosis [Unknown]
  - Ureteric obstruction [Unknown]
